FAERS Safety Report 8859334 (Version 1)
Quarter: 2012Q4

REPORT INFORMATION
  Report Type: 
  Country: US (occurrence: US)
  Receive Date: 20121024
  Receipt Date: 20121024
  Transmission Date: 20130627
  Serious: No
  Sender: FDA-Public Use
  Company Number: US-ASTRAZENECA-2012SE17068

PATIENT
  Age: 54 Year
  Sex: Female
  Weight: 90.7 kg

DRUGS (2)
  1. TOPROL XL [Suspect]
     Indication: HYPERTENSION
     Route: 048
  2. TOPROL XL [Suspect]
     Indication: HYPERTENSION
     Dosage: 100 MG IN THE MORNING AND 50 MG AT NIGHT
     Route: 048
     Dates: start: 201201

REACTIONS (3)
  - Dysphagia [Unknown]
  - Off label use [Unknown]
  - Inappropriate schedule of drug administration [Unknown]
